FAERS Safety Report 11003424 (Version 1)
Quarter: 2015Q2

REPORT INFORMATION
  Report Type: Spontaneous
  Country: US (occurrence: None)
  Receive Date: 20150408
  Receipt Date: 20150408
  Transmission Date: 20150821
  Serious: No
  Sender: FDA-Public Use
  Company Number: None

PATIENT
  Age: 23 Year
  Sex: Female
  Weight: 58.97 kg

DRUGS (4)
  1. TRAMADOL [Suspect]
     Active Substance: TRAMADOL
     Indication: FUNGAL INFECTION
     Dosage: 2X/30 QUANTITY, EVERY 6 HOURS, TAKEN BY MOUTH
     Route: 048
  2. VITAMIN C [Concomitant]
     Active Substance: ASCORBIC ACID
  3. TRAMADOL [Suspect]
     Active Substance: TRAMADOL
     Indication: CYSTITIS
     Dosage: 2X/30 QUANTITY, EVERY 6 HOURS, TAKEN BY MOUTH
     Route: 048
  4. APPLE CIDER VINEGAR [Concomitant]
     Active Substance: APPLE CIDER VINEGAR

REACTIONS (9)
  - Muscle spasms [None]
  - Back pain [None]
  - Pain [None]
  - Paraesthesia [None]
  - Ovulation pain [None]
  - Dizziness [None]
  - Proctalgia [None]
  - Genital pain [None]
  - Pollakiuria [None]

NARRATIVE: CASE EVENT DATE: 20150404
